FAERS Safety Report 6208597 (Version 2)
Quarter: 2014Q2

REPORT INFORMATION
  Report Type: Spontaneous
  Country: US (occurrence: US)
  Receive Date: 20070104
  Receipt Date: 20140618
  Transmission Date: 20141212
  Serious: Yes (Life-Threatening, Other)
  Sender: FDA-Public Use
  Company Number: US-BRISTOL-MYERS SQUIBB COMPANY-13627658

PATIENT
  Sex: Female

DRUGS (7)
  1. REYATAZ [Suspect]
     Route: 048
     Dates: start: 2006
  2. COMBIVIR [Suspect]
     Indication: HIV INFECTION
     Dosage: 1DF: 1 TAB
     Route: 048
     Dates: start: 2006, end: 2006
  3. RITONAVIR [Suspect]
     Dates: start: 2006
  4. BACTRIM [Suspect]
  5. EFAVIRENZ [Concomitant]
  6. AZITHROMYCIN [Concomitant]
  7. CONTRACEPTIVE [Concomitant]
     Route: 048

REACTIONS (1)
  - Haemolytic anaemia [Recovered/Resolved]
